FAERS Safety Report 13443436 (Version 1)
Quarter: 2017Q2

REPORT INFORMATION
  Report Type: Spontaneous
  Country: LB (occurrence: LB)
  Receive Date: 20170414
  Receipt Date: 20170414
  Transmission Date: 20170830
  Serious: Yes (Other)
  Sender: FDA-Public Use
  Company Number: PHHY2017LB052935

PATIENT
  Sex: Female

DRUGS (1)
  1. COSENTYX [Suspect]
     Active Substance: SECUKINUMAB
     Indication: PSORIATIC ARTHROPATHY
     Dosage: 300 MG, UNK ( FOR FIRST 5 WEEKS THEN ONCE PER MONTH)
     Route: 058
     Dates: start: 201610

REACTIONS (6)
  - Aphasia [Unknown]
  - Pruritus [Unknown]
  - Oesophageal infection [Recovered/Resolved]
  - Fungal infection [Recovered/Resolved]
  - Weight decreased [Unknown]
  - Rash [Unknown]
